FAERS Safety Report 8012975-2 (Version None)
Quarter: 2011Q4

REPORT INFORMATION
  Report Type: 
  Country: None (occurrence: None)
  Receive Date: 20111223
  Receipt Date: 20111209
  Transmission Date: 20120403
  Serious: Yes (Other)
  Sender: FDA-Public Use
  Company Number: CRC-11-331

PATIENT
  Age: 36 Year
  Sex: Male

DRUGS (1)
  1. FINASTERIDE [Suspect]
     Indication: ALOPECIA
     Dosage: 1 MG DAILY; ORAL, FROM AGE 26 TO 34
     Route: 048

REACTIONS (2)
  - TESTIS CANCER [None]
  - GYNAECOMASTIA [None]
